FAERS Safety Report 4342697-0 (Version None)
Quarter: 2004Q2

REPORT INFORMATION
  Report Type: 
  Country: None (occurrence: None)
  Receive Date: 20040420
  Receipt Date: 20040409
  Transmission Date: 20050107
  Serious: Yes (Hospitalization)
  Sender: FDA-Public Use
  Company Number: FLUV00304001019

PATIENT
  Age: 61 Year
  Sex: Male

DRUGS (8)
  1. LUVOX [Suspect]
     Indication: DEPRESSION
     Dosage: SEE IMAGE
     Route: 048
     Dates: start: 20020802, end: 20020905
  2. LUVOX [Suspect]
     Indication: DEPRESSION
     Dosage: SEE IMAGE
     Route: 048
     Dates: start: 20020906, end: 20020918
  3. LUVOX [Suspect]
     Indication: DEPRESSION
     Dosage: SEE IMAGE
     Route: 048
     Dates: start: 20020919, end: 20021114
  4. LUVOX [Suspect]
     Indication: DEPRESSION
     Dosage: SEE IMAGE
     Route: 048
     Dates: start: 20021115, end: 20030322
  5. LIMAS (LITHIUM CARBONATE) [Concomitant]
  6. HIRNAMIN (LEVOMEPROMAZINE) [Concomitant]
  7. DEPAS (ETIZOLAM) [Concomitant]
  8. HALCION [Concomitant]

REACTIONS (5)
  - ALANINE AMINOTRANSFERASE INCREASED [None]
  - ALCOHOLIC LIVER DISEASE [None]
  - ASPARTATE AMINOTRANSFERASE INCREASED [None]
  - CONDITION AGGRAVATED [None]
  - MANIA [None]
